FAERS Safety Report 4417826-0 (Version None)
Quarter: 2004Q3

REPORT INFORMATION
  Report Type: 
  Country: None (occurrence: None)
  Receive Date: 20040807
  Receipt Date: 20030929
  Transmission Date: 20050211
  Serious: No
  Sender: FDA-Public Use
  Company Number: US-MERCK-0310USA00115

PATIENT
  Age: 43 Year
  Sex: Male
  Weight: 84 kg

DRUGS (8)
  1. VICODIN [Concomitant]
     Route: 065
  2. FLEXERIL [Concomitant]
     Route: 048
  3. NEURONTIN [Concomitant]
     Route: 065
  4. ACIPHEX [Concomitant]
     Route: 065
  5. VIOXX [Suspect]
     Indication: INFLAMMATION
     Route: 048
     Dates: start: 19990901, end: 20021101
  6. VIOXX [Suspect]
     Indication: PAIN
     Route: 048
     Dates: start: 19990901, end: 20021101
  7. DESYREL [Concomitant]
     Route: 065
  8. EFFEXOR [Concomitant]
     Route: 065

REACTIONS (53)
  - ABDOMINAL DISTENSION [None]
  - ABDOMINAL PAIN UPPER [None]
  - ANXIETY [None]
  - BACK PAIN [None]
  - BENIGN COLONIC POLYP [None]
  - BONE DISORDER [None]
  - BURNING SENSATION [None]
  - CONSTIPATION [None]
  - DEPRESSION [None]
  - DIVERTICULUM INTESTINAL [None]
  - DUODENAL ULCER [None]
  - DYSGEUSIA [None]
  - DYSPEPSIA [None]
  - DYSURIA [None]
  - EAR PAIN [None]
  - ERUCTATION [None]
  - FATIGUE [None]
  - GAIT DISTURBANCE [None]
  - GASTROOESOPHAGEAL REFLUX DISEASE [None]
  - GLAUCOMA [None]
  - HAEMATOCHEZIA [None]
  - HAEMORRHOIDS [None]
  - HEADACHE [None]
  - HELICOBACTER PYLORI IDENTIFICATION TEST POSITIVE [None]
  - HYPERHIDROSIS [None]
  - HYPERMETROPIA [None]
  - HYPOAESTHESIA [None]
  - INTERVERTEBRAL DISC DEGENERATION [None]
  - IRRITABILITY [None]
  - LOCAL SWELLING [None]
  - MELAENA [None]
  - MUSCLE SPASMS [None]
  - MYOFASCIAL PAIN SYNDROME [None]
  - NASAL CONGESTION [None]
  - NAUSEA [None]
  - NECK PAIN [None]
  - NIGHT SWEATS [None]
  - OPTIC NERVE CUPPING [None]
  - PAIN IN EXTREMITY [None]
  - PROSTATIC DISORDER [None]
  - PSEUDODIVERTICULAR DISEASE [None]
  - RADICULAR PAIN [None]
  - RECTAL HAEMORRHAGE [None]
  - RHINITIS ALLERGIC [None]
  - SENSATION OF FOREIGN BODY [None]
  - SEXUAL DYSFUNCTION [None]
  - SINUS CONGESTION [None]
  - SLEEP DISORDER [None]
  - STOMACH DISCOMFORT [None]
  - STRESS SYMPTOMS [None]
  - TINNITUS [None]
  - UPPER RESPIRATORY TRACT INFECTION [None]
  - VISUAL DISTURBANCE [None]
